FAERS Safety Report 4814891-3 (Version None)
Quarter: 2005Q4

REPORT INFORMATION
  Report Type: 
  Country: None (occurrence: None)
  Receive Date: 20051028
  Receipt Date: 20050912
  Transmission Date: 20060501
  Serious: Yes (Hospitalization)
  Sender: FDA-Public Use
  Company Number: GBWYE971012SEP05

PATIENT
  Sex: Female

DRUGS (7)
  1. ENBREL [Suspect]
     Indication: DRUG USE FOR UNKNOWN INDICATION
     Route: 058
     Dates: start: 20050719, end: 20050905
  2. METHOTREXATE [Suspect]
     Route: 048
  3. DICLOFENAC [Concomitant]
  4. TRAMADOL [Concomitant]
  5. SENNA [Concomitant]
  6. DOCUSATE SODIUM [Concomitant]
  7. FOLIC ACID [Concomitant]

REACTIONS (14)
  - BALANCE DISORDER [None]
  - COUGH [None]
  - HEADACHE [None]
  - MALAISE [None]
  - MENINGITIS VIRAL [None]
  - MUSCULOSKELETAL STIFFNESS [None]
  - NASOPHARYNGITIS [None]
  - NAUSEA [None]
  - PHARYNGOLARYNGEAL PAIN [None]
  - PHOTOPHOBIA [None]
  - PYREXIA [None]
  - SEPSIS [None]
  - TONSILLITIS [None]
  - VOMITING [None]
